FAERS Safety Report 5800509-X (Version None)
Quarter: 2008Q3

REPORT INFORMATION
  Report Type: 
  Country: None (occurrence: None)
  Receive Date: 20080703
  Receipt Date: 20080623
  Transmission Date: 20090109
  Serious: Yes (Hospitalization)
  Sender: FDA-Public Use
  Company Number: B0527296A

PATIENT
  Age: 64 Year
  Sex: Female

DRUGS (1)
  1. ALKERAN [Suspect]
     Indication: AMYLOIDOSIS
     Dosage: 12MG PER DAY
     Route: 048
     Dates: start: 20080201

REACTIONS (6)
  - ABDOMINAL PAIN [None]
  - COLITIS EROSIVE [None]
  - DIARRHOEA [None]
  - DIARRHOEA HAEMORRHAGIC [None]
  - OFF LABEL USE [None]
  - VOMITING [None]
